FAERS Safety Report 8781364 (Version 1)
Quarter: 2012Q4

REPORT INFORMATION
  Report Type: 
  Country: US (occurrence: US)
  Receive Date: 20120913
  Receipt Date: 20120913
  Transmission Date: 20130627
  Serious: Yes (Other)
  Sender: FDA-Public Use
  Company Number: US-PFIZER INC-2012225515

PATIENT
  Age: 35 Year
  Sex: Female
  Weight: 58.96 kg

DRUGS (4)
  1. CHANTIX [Suspect]
     Indication: SMOKING CESSATION THERAPY
     Dosage: 0.5 mg, daily
     Dates: start: 201208, end: 201208
  2. CHANTIX [Suspect]
     Dosage: UNK
     Dates: start: 201208
  3. BUPROPION HYDROCHLORIDE [Concomitant]
     Indication: DEPRESSION
     Dosage: 150 mg, daily
  4. CLONAZEPAM [Concomitant]
     Indication: ANXIETY
     Dosage: 2 mg, 3x/day

REACTIONS (7)
  - Stress [Not Recovered/Not Resolved]
  - Road traffic accident [Unknown]
  - Fall [Unknown]
  - Skull fracture [Unknown]
  - Joint injury [Unknown]
  - Eye swelling [Unknown]
  - Face injury [Unknown]
